FAERS Safety Report 4567392-4 (Version None)
Quarter: 2005Q1

REPORT INFORMATION
  Report Type: 
  Country: None (occurrence: None)
  Receive Date: 20050127
  Receipt Date: 20050119
  Transmission Date: 20050727
  Serious: Yes (Hospitalization, Other)
  Sender: FDA-Public Use
  Company Number: BEWYE360421JAN05

PATIENT
  Age: 58 Year
  Sex: Male

DRUGS (4)
  1. EFFEXOR [Suspect]
     Indication: DEPRESSION
     Dosage: 75 MG 2X PER 1 DAY
     Route: 048
     Dates: start: 20040726, end: 20040813
  2. LASIX [Concomitant]
  3. ALDACTAZINE (ALTIZIDE/SPIRONOLACTONE) [Concomitant]
  4. ATENOLOL [Concomitant]

REACTIONS (7)
  - AFFECT LABILITY [None]
  - BLOOD POTASSIUM DECREASED [None]
  - BRADYPHRENIA [None]
  - CENTRAL PONTINE MYELINOLYSIS [None]
  - DISTURBANCE IN ATTENTION [None]
  - FATIGUE [None]
  - HYPONATRAEMIA [None]
